FAERS Safety Report 5919288-0 (Version None)
Quarter: 2008Q4

REPORT INFORMATION
  Report Type: 
  Country: None (occurrence: None)
  Receive Date: 20081015
  Receipt Date: 20081006
  Transmission Date: 20090506
  Serious: Yes (Hospitalization)
  Sender: FDA-Public Use
  Company Number: PHHY2008FR18497

PATIENT
  Sex: Female
  Weight: 73 kg

DRUGS (5)
  1. CERTICAN [Suspect]
     Indication: HEART TRANSPLANT
     Dosage: 3.25MG PER DAY
     Dates: start: 20070108, end: 20080801
  2. NEORAL [Suspect]
     Indication: HEART TRANSPLANT
     Dosage: 110MG PER DAY
     Dates: start: 19980101
  3. SOLUPRED [Concomitant]
     Indication: HEART TRANSPLANT
     Dosage: 5MG PER DAY
     Dates: start: 19980101
  4. SOPROL [Concomitant]
     Indication: HYPERTENSION
     Dosage: 5MG PER DAY
     Dates: start: 19980101
  5. KARDEGIC [Concomitant]
     Dosage: 160MG PER DAY
     Dates: start: 19980101

REACTIONS (10)
  - ASTHENIA [None]
  - BRONCHOALVEOLAR LAVAGE ABNORMAL [None]
  - CARBON MONOXIDE DIFFUSING CAPACITY DECREASED [None]
  - GENERAL PHYSICAL HEALTH DETERIORATION [None]
  - INTERSTITIAL LUNG DISEASE [None]
  - LUNG INFILTRATION [None]
  - OXYGEN SATURATION DECREASED [None]
  - PULMONARY EOSINOPHILIA [None]
  - PYREXIA [None]
  - RALES [None]
